FAERS Safety Report 11875468 (Version 1)
Quarter: 2015Q4

REPORT INFORMATION
  Report Type: Report from Study
  Country: BR (occurrence: BR)
  Receive Date: 20151229
  Receipt Date: 20151229
  Transmission Date: 20160305
  Serious: Yes (Life-Threatening)
  Sender: FDA-Public Use
  Company Number: PHHY2015BR170061

PATIENT
  Sex: Female
  Weight: 83 kg

DRUGS (2)
  1. NILOTINIB [Suspect]
     Active Substance: NILOTINIB
     Indication: CHRONIC MYELOID LEUKAEMIA
     Dosage: 2 DF, Q12H (2 TABLETS IN THE MORNING AND 2 TABLETS IN THE AFTERNOON)
     Route: 048
  2. NILOTINIB [Suspect]
     Active Substance: NILOTINIB
     Dosage: 2 DF OF 200 MG, QD
     Route: 048

REACTIONS (19)
  - Aphthous ulcer [Recovering/Resolving]
  - Pruritus generalised [Unknown]
  - Feeling abnormal [Unknown]
  - Skin disorder [Unknown]
  - Pyrexia [Unknown]
  - Dyspnoea [Unknown]
  - Mass [Unknown]
  - Chills [Unknown]
  - Pain in extremity [Unknown]
  - Pain [Recovered/Resolved]
  - Pain in extremity [Recovered/Resolved]
  - Pain [Unknown]
  - Ear pain [Unknown]
  - Headache [Recovered/Resolved]
  - Dyspnoea [Recovered/Resolved]
  - Ear pain [Recovered/Resolved]
  - Fatigue [Recovered/Resolved]
  - Fatigue [Unknown]
  - Pruritus generalised [Recovered/Resolved]
